FAERS Safety Report 9541755 (Version 1)
Quarter: 2013Q3

REPORT INFORMATION
  Report Type: Spontaneous
  Country: US (occurrence: None)
  Receive Date: 20130919
  Receipt Date: 20130919
  Transmission Date: 20140515
  Serious: Yes (Hospitalization)
  Sender: FDA-Public Use
  Company Number: None

PATIENT
  Age: 46 Year
  Sex: Male
  Weight: 81 kg

DRUGS (1)
  1. HYDROCHLOROTHIAZIDE [Suspect]
     Indication: OEDEMA
     Dosage: 25 MG EVERY DAY PO
     Route: 048
     Dates: start: 20120403, end: 20130830

REACTIONS (4)
  - Renal failure acute [None]
  - Hypercalcaemia [None]
  - Blood urea increased [None]
  - Blood creatinine increased [None]
